FAERS Safety Report 12460101 (Version 5)
Quarter: 2016Q3

REPORT INFORMATION
  Report Type: Spontaneous
  Country: US (occurrence: US)
  Receive Date: 20160613
  Receipt Date: 20160818
  Transmission Date: 20161109
  Serious: Yes (Other)
  Sender: FDA-Public Use
  Company Number: US-PFIZER INC-2016285762

PATIENT
  Age: 81 Year
  Sex: Male
  Weight: 71.66 kg

DRUGS (3)
  1. SUTENT [Suspect]
     Active Substance: SUNITINIB MALATE
     Indication: METASTATIC RENAL CELL CARCINOMA
     Dosage: 50 MG, CYCLIC (2 WEEKS ON/1 WEEK OFF)
     Dates: start: 20160428
  2. ZYRTEC [Concomitant]
     Active Substance: CETIRIZINE HYDROCHLORIDE
     Dosage: UNK, AS NEEDED
  3. IMODIUM [Concomitant]
     Active Substance: LOPERAMIDE HYDROCHLORIDE
     Dosage: UNK

REACTIONS (21)
  - Haemoglobin abnormal [Unknown]
  - Productive cough [Not Recovered/Not Resolved]
  - Red blood cell count decreased [Recovering/Resolving]
  - Dysgeusia [Not Recovered/Not Resolved]
  - Blood count abnormal [Recovering/Resolving]
  - Dizziness [Unknown]
  - Feeling jittery [Unknown]
  - Skin lesion [Recovered/Resolved]
  - Asthenia [Unknown]
  - Rhinorrhoea [Not Recovered/Not Resolved]
  - Blood pressure increased [Unknown]
  - Dry skin [Unknown]
  - White blood cell count decreased [Recovering/Resolving]
  - Diarrhoea [Recovered/Resolved]
  - Malaise [Unknown]
  - Sleep disorder [Unknown]
  - Weight decreased [Not Recovered/Not Resolved]
  - Depression [Unknown]
  - Blister [Unknown]
  - Haemoglobin decreased [Recovering/Resolving]
  - Chills [Unknown]
